FAERS Safety Report 18623771 (Version 1)
Quarter: 2020Q4

REPORT INFORMATION
  Report Type: Spontaneous
  Country: US (occurrence: US)
  Receive Date: 20201216
  Receipt Date: 20201216
  Transmission Date: 20210114
  Serious: No
  Sender: FDA-Public Use
  Company Number: US-GW PHARMA-202012USGW04329

PATIENT

DRUGS (8)
  1. ONFI [Concomitant]
     Active Substance: CLOBAZAM
     Indication: SEIZURE
     Dosage: UNK
     Route: 065
  2. BUTALBITAL [Concomitant]
     Active Substance: BUTALBITAL
     Indication: PRODUCT USED FOR UNKNOWN INDICATION
     Dosage: UNK
     Route: 065
  3. FELBAMATE. [Concomitant]
     Active Substance: FELBAMATE
     Indication: PRODUCT USED FOR UNKNOWN INDICATION
     Dosage: UNK
     Route: 065
  4. EPIDIOLEX [Suspect]
     Active Substance: CANNABIDIOL
     Indication: LENNOX-GASTAUT SYNDROME
     Dosage: 10.04 MG/KG/DAY, 410 MILLIGRAM, BID
     Route: 048
     Dates: start: 20200621, end: 20200718
  5. DEPAKOTE [Concomitant]
     Active Substance: DIVALPROEX SODIUM
     Indication: PRODUCT USED FOR UNKNOWN INDICATION
     Dosage: UNK
     Route: 065
  6. EPIDIOLEX [Suspect]
     Active Substance: CANNABIDIOL
     Dosage: 15.07 MG/KG/DAY, 1230 MILLIGRAM, QD (4.1 ML IN THE MORNING AND 8.2 ML AT NIGHT TIME AFTER SUPPER)
     Route: 048
     Dates: start: 20200719, end: 20201207
  7. EPIDIOLEX [Suspect]
     Active Substance: CANNABIDIOL
     Dosage: 12.74 MG/KG/DAY, 520 MILLIGRAM, BID
     Route: 048
     Dates: start: 20201208
  8. LAMICTAL [Concomitant]
     Active Substance: LAMOTRIGINE
     Indication: PRODUCT USED FOR UNKNOWN INDICATION
     Dosage: UNK
     Route: 065

REACTIONS (5)
  - Hypersomnia [Recovering/Resolving]
  - Diarrhoea [Unknown]
  - Dysarthria [Recovering/Resolving]
  - Weight decreased [Unknown]
  - Balance disorder [Recovering/Resolving]

NARRATIVE: CASE EVENT DATE: 2020
